FAERS Safety Report 8021721-8 (Version None)
Quarter: 2012Q1

REPORT INFORMATION
  Report Type: 
  Country: None (occurrence: None)
  Receive Date: 20120104
  Receipt Date: 20120102
  Transmission Date: 20120608
  Serious: Yes (Hospitalization)
  Sender: FDA-Public Use
  Company Number: US-B.I. PHARMACEUTICALS,INC./RIDGEFIELD-2012-BP-00076BP

PATIENT
  Age: 52 Year
  Sex: Female

DRUGS (3)
  1. SPIRIVA [Suspect]
     Indication: LUNG DISORDER
     Dates: start: 20070101
  2. FLOVENT [Concomitant]
  3. ALBUTEROL [Concomitant]

REACTIONS (1)
  - LUNG DISORDER [None]
